FAERS Safety Report 5070331-3 (Version None)
Quarter: 2006Q3

REPORT INFORMATION
  Report Type: 
  Country: None (occurrence: None)
  Receive Date: 20060731
  Receipt Date: 20060718
  Transmission Date: 20061208
  Serious: Yes (Life-Threatening, Hospitalization)
  Sender: FDA-Public Use
  Company Number: 2006038531

PATIENT
  Age: 70 Year
  Sex: Male

DRUGS (12)
  1. SUTENT [Suspect]
     Indication: HEPATIC NEOPLASM MALIGNANT
     Dosage: 50 MG (50 MG, 4 WEEK INTERVAL: 7 WEEKS) ORAL
     Route: 048
     Dates: start: 20060218, end: 20060315
  2. ZOCOR [Concomitant]
  3. CERVOXAN (VINBURNINE) [Concomitant]
  4. GINKOR (GINKGO BILOBA EXTRACT, TROXERUTIN) [Concomitant]
  5. XANAX [Concomitant]
  6. PRAVASTATIN [Concomitant]
  7. AUGMENTIN '125' [Concomitant]
  8. CELESTONE [Concomitant]
  9. NEXIUM [Concomitant]
  10. COALGAN (CALCIUM ALGINATE) [Concomitant]
  11. MICONAZOLE NITRATE [Concomitant]
  12. FLUCONAZOLE [Concomitant]

REACTIONS (10)
  - ASTHENIA [None]
  - BRAIN SCAN ABNORMAL [None]
  - CEREBROVASCULAR ACCIDENT [None]
  - CONFUSIONAL STATE [None]
  - EPISTAXIS [None]
  - INFECTION [None]
  - MUCOSAL INFLAMMATION [None]
  - NASOPHARYNGEAL DISORDER [None]
  - SOMNOLENCE [None]
  - THROMBOCYTOPENIA [None]
